FAERS Safety Report 8765455 (Version 2)
Quarter: 2012Q4

REPORT INFORMATION
  Report Type: 
  Country: CO (occurrence: CO)
  Receive Date: 20120831
  Receipt Date: 20120911
  Transmission Date: 20130627
  Serious: Yes (Hospitalization, Other)
  Sender: FDA-Public Use
  Company Number: CO-PFIZER INC-2012212924

PATIENT
  Age: 73 Year
  Sex: Female

DRUGS (7)
  1. LYRICA [Suspect]
     Indication: SPINAL PAIN
     Dosage: UNK
     Route: 048
     Dates: start: 201008
  2. LYRICA [Suspect]
     Dosage: 75 mg, 3x/day
     Route: 048
     Dates: start: 20120827
  3. OLMESARTAN [Suspect]
     Indication: HYPERTENSION
     Dosage: UNK
     Route: 048
     Dates: start: 200808
  4. PREDNISOLONE [Concomitant]
     Indication: RHEUMATOID ARTHRITIS
     Dosage: UNK
     Route: 048
  5. PREDNISOLONE [Concomitant]
     Indication: SJOGREN^S SYNDROME
  6. AZATHIOPRINE [Concomitant]
     Indication: RHEUMATOID ARTHRITIS
     Dosage: UNK
     Route: 048
  7. AZATHIOPRINE [Concomitant]
     Indication: SJOGREN^S SYNDROME

REACTIONS (2)
  - Pulmonary fibrosis [Unknown]
  - Blood pressure decreased [Not Recovered/Not Resolved]
